FAERS Safety Report 4867181-7 (Version None)
Quarter: 2005Q4

REPORT INFORMATION
  Report Type: 
  Country: None (occurrence: None)
  Receive Date: 20051228
  Receipt Date: 20051216
  Transmission Date: 20060501
  Serious: Yes (Other)
  Sender: FDA-Public Use
  Company Number: PHHO2005AT19659

PATIENT

DRUGS (6)
  1. VOLTAREN [Suspect]
  2. NEODOLPASSE [Concomitant]
  3. ZELDOX [Concomitant]
  4. RISPERDAL [Concomitant]
  5. TRUXAL [Concomitant]
  6. TEMESTA [Concomitant]

REACTIONS (1)
  - PSYCHOTIC DISORDER [None]
